FAERS Safety Report 17672024 (Version 2)
Quarter: 2020Q2

REPORT INFORMATION
  Report Type: Report from Study
  Country: CA (occurrence: CA)
  Receive Date: 20200415
  Receipt Date: 20200422
  Transmission Date: 20200713
  Serious: Yes (Other)
  Sender: FDA-Public Use
  Company Number: CA-JNJFOC-20200407552

PATIENT
  Age: 40 Year
  Sex: Female
  Weight: 72 kg

DRUGS (3)
  1. REMICADE [Suspect]
     Active Substance: INFLIXIMAB
     Indication: CROHN^S DISEASE
     Route: 042
  2. REACTINE                           /00884302/ [Concomitant]
     Active Substance: CETIRIZINE HYDROCHLORIDE
     Indication: MULTIPLE ALLERGIES
     Route: 065
  3. FEROMAX                            /00023550/ [Concomitant]
     Active Substance: IRON SUCROSE
     Indication: MULTIPLE ALLERGIES
     Route: 065

REACTIONS (1)
  - Herpes zoster oticus [Recovering/Resolving]

NARRATIVE: CASE EVENT DATE: 20200320
